FAERS Safety Report 23307628 (Version 2)
Quarter: 2024Q3

REPORT INFORMATION
  Report Type: Spontaneous
  Country: DE (occurrence: DE)
  Receive Date: 20231218
  Receipt Date: 20240807
  Transmission Date: 20241017
  Serious: Yes (Hospitalization)
  Sender: BAYER
  Company Number: DE-BAYER-2023A175489

PATIENT
  Age: 52 Year
  Sex: Female

DRUGS (2)
  1. MIRENA [Suspect]
     Active Substance: LEVONORGESTREL
     Indication: Contraception
     Dosage: 20?G/DAY
     Route: 015
     Dates: start: 2017
  2. ESTROGEN NOS [Concomitant]
     Active Substance: ESTROGENS
     Indication: Hormone replacement therapy

REACTIONS (1)
  - Menopausal symptoms [None]
